FAERS Safety Report 6186439-5 (Version None)
Quarter: 2009Q2

REPORT INFORMATION
  Report Type: 
  Country: None (occurrence: None)
  Receive Date: 20090511
  Receipt Date: 20090427
  Transmission Date: 20091009
  Serious: Yes (Other)
  Sender: FDA-Public Use
  Company Number: IT-AMGEN-US344909

PATIENT
  Sex: Female

DRUGS (1)
  1. ENBREL [Suspect]
     Indication: PSORIATIC ARTHROPATHY
     Dosage: 50 MG WEEKLY
     Route: 058
     Dates: start: 20070927, end: 20090201

REACTIONS (6)
  - DISEASE PROGRESSION [None]
  - ECZEMA NUMMULAR [None]
  - FOLLICULITIS [None]
  - PSORIASIS [None]
  - RASH PUSTULAR [None]
  - SKIN INFECTION [None]
